FAERS Safety Report 6656119-8 (Version None)
Quarter: 2010Q1

REPORT INFORMATION
  Report Type: 
  Country: None (occurrence: None)
  Receive Date: 20100329
  Receipt Date: 20100319
  Transmission Date: 20100710
  Serious: Yes (Other)
  Sender: FDA-Public Use
  Company Number: B0643370A

PATIENT
  Age: 40 Year
  Sex: Female

DRUGS (4)
  1. RETAPAMULIN [Suspect]
     Route: 061
  2. MUPIROCIN [Concomitant]
     Route: 061
  3. CORTICOSTEROIDS [Concomitant]
     Route: 061
  4. UNSPECIFIED IMMUNOSUPPRESSANTS [Concomitant]
     Route: 065

REACTIONS (3)
  - DERMATITIS [None]
  - DERMATITIS BULLOUS [None]
  - DERMATITIS CONTACT [None]
